FAERS Safety Report 5235558-6 (Version None)
Quarter: 2007Q1

REPORT INFORMATION
  Report Type: 
  Country: None (occurrence: None)
  Receive Date: 20070208
  Receipt Date: 20070208
  Transmission Date: 20070707
  Serious: Yes (Life-Threatening)
  Sender: FDA-Public Use
  Company Number: None

PATIENT
  Age: 46 Year
  Sex: Male
  Weight: 74.8435 kg

DRUGS (1)
  1. LEXAPRO [Suspect]
     Indication: DEPRESSION
     Dosage: 10 MILLIGRAMS DAILY PO
     Route: 048
     Dates: start: 20061006, end: 20061013

REACTIONS (12)
  - DRUG INEFFECTIVE [None]
  - DYSPNOEA [None]
  - HYPOAESTHESIA [None]
  - HYPOKINESIA [None]
  - INJURY [None]
  - INTENTIONAL SELF-INJURY [None]
  - LIMB OPERATION [None]
  - MUSCULOSKELETAL PAIN [None]
  - PAIN [None]
  - PERONEAL NERVE PALSY [None]
  - SUICIDE ATTEMPT [None]
  - SURGERY [None]
